FAERS Safety Report 11168895 (Version 1)
Quarter: 2015Q2

REPORT INFORMATION
  Report Type: Spontaneous
  Country: CA (occurrence: CA)
  Receive Date: 20150605
  Receipt Date: 20150605
  Transmission Date: 20150821
  Serious: Yes (Death)
  Sender: FDA-Public Use
  Company Number: CA-B.I. PHARMACEUTICALS,INC./RIDGEFIELD-2015-BI-30221CN

PATIENT
  Age: 64 Year
  Sex: Male
  Weight: 72.57 kg

DRUGS (1)
  1. FLOMAX [Suspect]
     Active Substance: TAMSULOSIN HYDROCHLORIDE
     Indication: BENIGN PROSTATIC HYPERPLASIA
     Dosage: FORMULATION: TABLET (EXTENDED RELEASE)
     Route: 065

REACTIONS (5)
  - Arrhythmia [Fatal]
  - Circulatory collapse [Fatal]
  - Dizziness [Fatal]
  - Fall [Fatal]
  - Loss of consciousness [Fatal]
